FAERS Safety Report 5669712-6 (Version None)
Quarter: 2008Q1

REPORT INFORMATION
  Report Type: 
  Country: None (occurrence: None)
  Receive Date: 20080317
  Receipt Date: 20080307
  Transmission Date: 20080703
  Serious: Yes (Other)
  Sender: FDA-Public Use
  Company Number: PHBS2008AU03107

PATIENT
  Age: 33 Year
  Sex: Male

DRUGS (2)
  1. CARBAMAZEPINE [Suspect]
     Indication: CONVULSION
  2. CLOMIPRAMINE HCL [Suspect]
     Indication: EPILEPSY

REACTIONS (18)
  - ABNORMAL BEHAVIOUR [None]
  - ATROPHY [None]
  - BLOOD CREATINE PHOSPHOKINASE INCREASED [None]
  - BRUXISM [None]
  - CHOREA [None]
  - COMPULSIONS [None]
  - CONDITION AGGRAVATED [None]
  - DEPRESSED MOOD [None]
  - DYSPHAGIA [None]
  - DYSTONIA [None]
  - HYPOPERFUSION [None]
  - MEMORY IMPAIRMENT [None]
  - MUSCLE RIGIDITY [None]
  - SPEECH DISORDER [None]
  - SPUR CELL ANAEMIA [None]
  - TIC [None]
  - TONGUE BITING [None]
  - WEIGHT DECREASED [None]
